FAERS Safety Report 16294943 (Version 1)
Quarter: 2019Q2

REPORT INFORMATION
  Report Type: Spontaneous
  Country: DE (occurrence: DE)
  Receive Date: 20190509
  Receipt Date: 20190509
  Transmission Date: 20190711
  Serious: Yes (Other)
  Sender: FDA-Public Use
  Company Number: DE-TEVA-2019-DE-1047400

PATIENT
  Age: 4 Decade
  Sex: Female

DRUGS (6)
  1. PREDNISOLONE. [Suspect]
     Active Substance: PREDNISOLONE
     Indication: DIFFUSE LARGE B-CELL LYMPHOMA
     Dosage: RECEIVED SIX CYCLES
     Route: 065
     Dates: start: 2015
  2. VINCRISTINE [Suspect]
     Active Substance: VINCRISTINE
     Indication: DIFFUSE LARGE B-CELL LYMPHOMA
     Dosage: RECEIVED SIX CYCLES
     Route: 065
     Dates: start: 2015
  3. DOXORUBICIN [Suspect]
     Active Substance: DOXORUBICIN
     Indication: DIFFUSE LARGE B-CELL LYMPHOMA
     Dosage: RECEIVED SIX CYCLES
     Route: 065
     Dates: start: 2015
  4. RITUXIMAB. [Suspect]
     Active Substance: RITUXIMAB
     Indication: DIFFUSE LARGE B-CELL LYMPHOMA
     Dosage: RECEIVED SIX CYCLES
     Route: 065
     Dates: start: 2015
  5. CYCLOPHOSPHAMIDE. [Suspect]
     Active Substance: CYCLOPHOSPHAMIDE
     Indication: DIFFUSE LARGE B-CELL LYMPHOMA
     Dosage: RECEIVED SIX CYCLES
     Route: 065
     Dates: start: 2015
  6. ETOPOSIDE. [Suspect]
     Active Substance: ETOPOSIDE
     Indication: DIFFUSE LARGE B-CELL LYMPHOMA
     Dosage: RECEIVED SIX CYCLES
     Route: 065
     Dates: start: 2015

REACTIONS (1)
  - Myeloproliferative neoplasm [Unknown]

NARRATIVE: CASE EVENT DATE: 201801
